FAERS Safety Report 6071559-6 (Version None)
Quarter: 2009Q1

REPORT INFORMATION
  Report Type: 
  Country: None (occurrence: None)
  Receive Date: 20090210
  Receipt Date: 20090204
  Transmission Date: 20090719
  Serious: Yes (Hospitalization)
  Sender: FDA-Public Use
  Company Number: GB-JNJFOC-20080301571

PATIENT
  Sex: Female

DRUGS (5)
  1. SPORANOX [Suspect]
     Route: 048
  2. SPORANOX [Suspect]
     Indication: VULVOVAGINAL CANDIDIASIS
     Dosage: 400 MG (200 MG (2 X 100 MG)  REPEATED AFTER 12 HOURS
     Route: 048
  3. DOXYCYCLINE HYCLATE [Suspect]
     Indication: PELVIC INFLAMMATORY DISEASE
     Route: 048
  4. IBUPROFEN TABLETS [Suspect]
     Indication: PLANTAR FASCIITIS
     Route: 061
  5. CLOTRIMAZOLE [Suspect]
     Indication: CANDIDIASIS
     Route: 067

REACTIONS (5)
  - ARTHRALGIA [None]
  - CANDIDIASIS [None]
  - DRUG EXPOSURE DURING PREGNANCY [None]
  - PELVIC PAIN [None]
  - PLANTAR FASCIITIS [None]
